FAERS Safety Report 12158245 (Version 1)
Quarter: 2016Q1

REPORT INFORMATION
  Report Type: Spontaneous
  Country: US (occurrence: None)
  Receive Date: 20160307
  Receipt Date: 20160307
  Transmission Date: 20160526
  Serious: Yes (Life-Threatening, Hospitalization, Other)
  Sender: FDA-Public Use
  Company Number: None

PATIENT
  Age: 62 Year
  Sex: Female
  Weight: 52.16 kg

DRUGS (23)
  1. VIT. D, FOLIC ACID, VIT. B - COMPLEX [Concomitant]
     Active Substance: FOLIC ACID\VITAMINS
  2. HYDROCHLOROTHIAZIDE. [Concomitant]
     Active Substance: HYDROCHLOROTHIAZIDE
  3. CLARITIN [Concomitant]
     Active Substance: LORATADINE
  4. ALBUTEROL INHALER [Concomitant]
     Active Substance: ALBUTEROL
  5. PREDNISONE. [Concomitant]
     Active Substance: PREDNISONE
  6. ABUTEROL [Concomitant]
  7. XOPENEX [Concomitant]
     Active Substance: LEVALBUTEROL HYDROCHLORIDE
  8. PEPCID [Concomitant]
     Active Substance: FAMOTIDINE
  9. VIT. D [Concomitant]
  10. ADVAIR HFA [Concomitant]
     Active Substance: FLUTICASONE PROPIONATE\SALMETEROL XINAFOATE
  11. TYLENOL [Concomitant]
     Active Substance: ACETAMINOPHEN
  12. MULTI VITAMINS [Concomitant]
  13. RECLAST [Suspect]
     Active Substance: ZOLEDRONIC ACID
     Indication: OSTEOPOROSIS
     Dosage: ONCE A YEAR, INTO A VEIN
     Dates: start: 20131113
  14. XARELTO [Concomitant]
     Active Substance: RIVAROXABAN
  15. SPIRIVA [Concomitant]
     Active Substance: TIOTROPIUM BROMIDE MONOHYDRATE
  16. SINGULAIRS [Concomitant]
  17. MAXALTM MLT [Concomitant]
  18. NEBULIZER SOLUTION [Concomitant]
  19. PAXIL [Concomitant]
     Active Substance: PAROXETINE HYDROCHLORIDE
  20. CODINE SULFATE [Concomitant]
  21. COCINE ELIXER FLEXETIL [Concomitant]
  22. CALTRATE [Concomitant]
     Active Substance: CALCIUM CARBONATE
  23. GAVISCON [Concomitant]
     Active Substance: ALUMINUM HYDROXIDE\MAGNESIUM CARBONATE

REACTIONS (10)
  - Vomiting [None]
  - Somnolence [None]
  - Pyrexia [None]
  - Pain [None]
  - Asthma [None]
  - Impaired work ability [None]
  - Headache [None]
  - Malaise [None]
  - Cerebrovascular accident [None]
  - Diarrhoea [None]

NARRATIVE: CASE EVENT DATE: 20131113
